FAERS Safety Report 16849568 (Version 1)
Quarter: 2019Q3

REPORT INFORMATION
  Report Type: Spontaneous
  Country: IT (occurrence: IT)
  Receive Date: 20190925
  Receipt Date: 20190925
  Transmission Date: 20191005
  Serious: Yes (Other)
  Sender: FDA-Public Use
  Company Number: IT-ASTRAZENECA-2019SF32871

PATIENT

DRUGS (6)
  1. ETOPOSIDE. [Concomitant]
     Active Substance: ETOPOSIDE
     Indication: NON-SMALL CELL LUNG CANCER
  2. AMRUBICIN [Concomitant]
     Active Substance: AMRUBICIN
     Indication: NON-SMALL CELL LUNG CANCER
  3. IRINOTECAN [Concomitant]
     Active Substance: IRINOTECAN
     Indication: NON-SMALL CELL LUNG CANCER
  4. CISPLATIN. [Concomitant]
     Active Substance: CISPLATIN
     Indication: NON-SMALL CELL LUNG CANCER
  5. GEFITINIB. [Suspect]
     Active Substance: GEFITINIB
     Indication: NON-SMALL CELL LUNG CANCER
     Route: 048
  6. NIVOLUMAB [Concomitant]
     Active Substance: NIVOLUMAB
     Indication: NON-SMALL CELL LUNG CANCER

REACTIONS (3)
  - Small cell lung cancer [Recovered/Resolved]
  - Malignant transformation [Recovered/Resolved]
  - Malignant neoplasm progression [Recovering/Resolving]
